FAERS Safety Report 7701886-5 (Version None)
Quarter: 2011Q3

REPORT INFORMATION
  Report Type: 
  Country: None (occurrence: None)
  Receive Date: 20110822
  Receipt Date: 20110817
  Transmission Date: 20111222
  Serious: Yes (Life-Threatening, Other)
  Sender: FDA-Public Use
  Company Number: JP-PFIZER INC-2011168790

PATIENT
  Age: 87 Year
  Sex: Male

DRUGS (9)
  1. SENNA-MINT WAF [Concomitant]
     Dosage: 24 MG, 1X/DAY
     Route: 048
     Dates: start: 20100116
  2. DIPYRIDAMOLE [Concomitant]
     Dosage: 25 MG, 3X/DAY
     Route: 048
     Dates: start: 20030311
  3. IRBESARTAN [Concomitant]
     Dosage: 10 MG, 1X/DAY
     Route: 048
     Dates: start: 20100116
  4. ATELEC [Concomitant]
     Dosage: 10 MG, 2X/DAY
     Route: 048
     Dates: start: 20110611
  5. MUCOSTA [Concomitant]
     Dosage: 100 MG, 3X/DAY
     Route: 048
     Dates: start: 20110709
  6. LOXOPROFEN SODIUM [Concomitant]
     Dosage: 60 MG, 3X/DAY
     Route: 048
     Dates: start: 20030911
  7. LYRICA [Suspect]
     Indication: NEURALGIA
     Dosage: 75 MG, SINGLE
     Route: 048
     Dates: start: 20110723, end: 20110723
  8. LANSOPRAZOLE [Concomitant]
     Dosage: UNK
     Route: 048
     Dates: start: 20100116
  9. TRICHLORMETHIAZIDE [Concomitant]
     Dosage: UNK
     Route: 048
     Dates: start: 20110625

REACTIONS (2)
  - LOSS OF CONSCIOUSNESS [None]
  - CEREBRAL INFARCTION [None]
